FAERS Safety Report 15798018 (Version 1)
Quarter: 2019Q1

REPORT INFORMATION
  Report Type: Spontaneous
  Country: US (occurrence: US)
  Receive Date: 20190104
  Receipt Date: 20190104
  Transmission Date: 20190417
  Serious: No
  Sender: FDA-Public Use
  Company Number: None

PATIENT
  Age: 57 Year

DRUGS (4)
  1. ORENCIA [Suspect]
     Active Substance: ABATACEPT
     Indication: RHEUMATOID ARTHRITIS
     Dates: start: 20181207
  2. FAMOTIDINE. [Concomitant]
     Active Substance: FAMOTIDINE
  3. METHOTREXATE. [Concomitant]
     Active Substance: METHOTREXATE
  4. NAPHAZOLINE [Concomitant]
     Active Substance: NAPHAZOLINE\NAPHAZOLINE HYDROCHLORIDE

REACTIONS (7)
  - Purpura [None]
  - Arthralgia [None]
  - Gingival pain [None]
  - Pain [None]
  - Skin burning sensation [None]
  - Rash erythematous [None]
  - Restless legs syndrome [None]
